FAERS Safety Report 8329644-1 (Version None)
Quarter: 2012Q2

REPORT INFORMATION
  Report Type: 
  Country: None (occurrence: None)
  Receive Date: 20120502
  Receipt Date: 20120425
  Transmission Date: 20120825
  Serious: Yes (Hospitalization)
  Sender: FDA-Public Use
  Company Number: US-GENZYME-MOZO-1000377

PATIENT
  Sex: Female
  Weight: 62.7 kg

DRUGS (10)
  1. DIAZEPAM [Concomitant]
     Indication: TREMOR
     Dosage: 5 MG, BID
     Route: 048
  2. VITAMIN D [Concomitant]
     Indication: PRODUCT USED FOR UNKNOWN INDICATION
     Dosage: 1000 U, QD
     Route: 048
  3. MOZOBIL [Suspect]
     Indication: MULTIPLE MYELOMA
     Dosage: 320 MCG, QD
     Route: 058
     Dates: start: 20100817, end: 20100819
  4. BORTEZOMIB [Concomitant]
     Indication: MULTIPLE MYELOMA
     Dosage: 1.3 MG/M2, ONCE
     Route: 042
     Dates: start: 20100819, end: 20100819
  5. SPIRIVA [Concomitant]
     Indication: PRODUCT USED FOR UNKNOWN INDICATION
     Dosage: 18 MCG, QD
     Route: 065
  6. VITAMIN E [Concomitant]
     Indication: PRODUCT USED FOR UNKNOWN INDICATION
     Dosage: 400 U, QD
     Route: 048
  7. ADVAIR DISKUS 100/50 [Concomitant]
     Indication: PRODUCT USED FOR UNKNOWN INDICATION
     Dosage: 1 DF, BID
     Route: 065
  8. ALBUTEROL [Concomitant]
     Indication: DYSPNOEA
     Dosage: UNK
     Route: 065
  9. FEXOFENADINE [Concomitant]
     Indication: PRODUCT USED FOR UNKNOWN INDICATION
     Dosage: 180 MG, QD
     Route: 065
  10. SINGULAIR [Concomitant]
     Indication: PRODUCT USED FOR UNKNOWN INDICATION
     Dosage: 10 MG, QD
     Route: 048

REACTIONS (5)
  - CHILLS [None]
  - NAUSEA [None]
  - DIARRHOEA [None]
  - DIZZINESS [None]
  - VERTIGO [None]
